FAERS Safety Report 22843232 (Version 4)
Quarter: 2023Q4

REPORT INFORMATION
  Report Type: Spontaneous
  Country: US (occurrence: US)
  Receive Date: 20230821
  Receipt Date: 20231026
  Transmission Date: 20240110
  Serious: No
  Sender: FDA-Public Use
  Company Number: US-Calliditas-2023CAL01023

PATIENT
  Age: 66 Year
  Sex: Female

DRUGS (2)
  1. TARPEYO [Suspect]
     Active Substance: BUDESONIDE
     Indication: IgA nephropathy
     Dosage: 16 MG (4 MG CAPSULES) ONCE DAILY
     Route: 048
     Dates: start: 20230805, end: 20230816
  2. HYDRALAZINE [Concomitant]
     Active Substance: HYDRALAZINE HYDROCHLORIDE
     Dates: start: 20230809, end: 20230816

REACTIONS (3)
  - Urinary tract infection [Unknown]
  - Rash [Recovering/Resolving]
  - Antineutrophil cytoplasmic antibody increased [Recovering/Resolving]

NARRATIVE: CASE EVENT DATE: 20230801
